FAERS Safety Report 12628368 (Version 1)
Quarter: 2016Q3

REPORT INFORMATION
  Report Type: Spontaneous
  Country: US (occurrence: None)
  Receive Date: 20160805
  Receipt Date: 20160805
  Transmission Date: 20161109
  Serious: No
  Sender: FDA-Public Use
  Company Number: None

PATIENT
  Sex: Female

DRUGS (2)
  1. HUMULIN N [Suspect]
     Active Substance: INSULIN HUMAN
  2. HUMALOG KWIKPEN [Suspect]
     Active Substance: INSULIN LISPRO

REACTIONS (2)
  - Drug dispensing error [None]
  - Product name confusion [None]

NARRATIVE: CASE EVENT DATE: 2016
